FAERS Safety Report 19591644 (Version 1)
Quarter: 2021Q3

REPORT INFORMATION
  Report Type: Report from Study
  Country: US (occurrence: US)
  Receive Date: 20210721
  Receipt Date: 20210721
  Transmission Date: 20211014
  Serious: Yes (Other)
  Sender: FDA-Public Use
  Company Number: US-TAKEDA-2021TUS044431

PATIENT
  Age: 20 Year
  Sex: Female

DRUGS (1)
  1. CUVITRU [Suspect]
     Active Substance: HUMAN IMMUNOGLOBULIN G
     Indication: COMBINED IMMUNODEFICIENCY
     Dosage: UNK
     Route: 058
     Dates: end: 20210409

REACTIONS (2)
  - Therapy interrupted [Recovering/Resolving]
  - Bone marrow transplant [Recovering/Resolving]

NARRATIVE: CASE EVENT DATE: 20210409
